FAERS Safety Report 5558645-1 (Version None)
Quarter: 2007Q4

REPORT INFORMATION
  Report Type: 
  Country: None (occurrence: None)
  Receive Date: 20071214
  Receipt Date: 20071127
  Transmission Date: 20080405
  Serious: No
  Sender: FDA-Public Use
  Company Number: US-BOEHRINGER INGELHEIM PHARMACEUTICALS, INC.-2007-BP-20098BP

PATIENT
  Sex: Female

DRUGS (5)
  1. MIRAPEX [Suspect]
     Indication: RESTLESS LEGS SYNDROME
     Route: 048
  2. MIRAPEX [Suspect]
     Route: 048
     Dates: start: 20070601
  3. AMARYL [Concomitant]
  4. ADVAIR DISKUS 100/50 [Concomitant]
     Route: 055
  5. LEXAPRO [Concomitant]
     Dates: start: 20070501

REACTIONS (2)
  - HYPERPHAGIA [None]
  - PATHOLOGICAL GAMBLING [None]
